FAERS Safety Report 15576893 (Version 1)
Quarter: 2018Q4

REPORT INFORMATION
  Report Type: Spontaneous
  Country: GB (occurrence: GB)
  Receive Date: 20181101
  Receipt Date: 20181101
  Transmission Date: 20190205
  Serious: Yes (Other)
  Sender: FDA-Public Use
  Company Number: GB-ALLERGAN-1850982US

PATIENT
  Age: 71 Year
  Sex: Female
  Weight: 52 kg

DRUGS (2)
  1. FLUOROMETHOLONE UNK [Suspect]
     Active Substance: FLUOROMETHOLONE
     Indication: EYE INFECTION
     Dosage: FOR 1 WEEK; THEN  2 X DAILY FOR 1 WEEK; THEN 1 X DAILY FOR 1 WEEK
     Route: 047
     Dates: start: 20180716, end: 20180720
  2. CHLORAMPHENICOL [Suspect]
     Active Substance: CHLORAMPHENICOL
     Indication: EYE INFECTION
     Dosage: FOR 1 WEEK
     Route: 047
     Dates: start: 20180716, end: 20180720

REACTIONS (5)
  - Throat tightness [Recovered/Resolved]
  - Chest pain [Recovered/Resolved]
  - Chest discomfort [Recovered/Resolved]
  - Fatigue [Recovered/Resolved]
  - Oropharyngeal pain [Recovered/Resolved]

NARRATIVE: CASE EVENT DATE: 20180718
